FAERS Safety Report 7586580-6 (Version None)
Quarter: 2011Q3

REPORT INFORMATION
  Report Type: 
  Country: None (occurrence: None)
  Receive Date: 20110701
  Receipt Date: 20110621
  Transmission Date: 20111222
  Serious: Yes (Hospitalization)
  Sender: FDA-Public Use
  Company Number: US-AMGEN-USASP2011031871

PATIENT
  Age: 61 Year
  Sex: Female

DRUGS (1)
  1. ENBREL [Suspect]
     Indication: RHEUMATOID ARTHRITIS
     Dosage: 50 MG, QWK
     Dates: start: 20090722

REACTIONS (6)
  - SYNOVIAL CYST [None]
  - BLISTER [None]
  - SKIN ULCER [None]
  - CHEILITIS [None]
  - NASAL ULCER [None]
  - ARTHRITIS [None]
